FAERS Safety Report 23727604 (Version 1)
Quarter: 2024Q2

REPORT INFORMATION
  Report Type: Spontaneous
  Country: US (occurrence: None)
  Receive Date: 20240409
  Receipt Date: 20240409
  Transmission Date: 20240716
  Serious: No
  Sender: FDA-Public Use
  Company Number: None

PATIENT
  Age: 67 Year
  Sex: Female
  Weight: 69.9 kg

DRUGS (6)
  1. OXALIPLATIN [Suspect]
     Active Substance: OXALIPLATIN
     Indication: Colon cancer
     Dosage: OTHER FREQUENCY : 100 MG/HR;?
     Route: 042
  2. OXALIPLATIN [Suspect]
     Active Substance: OXALIPLATIN
     Indication: Colon cancer
     Dosage: OTHER FREQUENCY : 25 MG/HR;?
     Route: 042
  3. dexamethasone injection 10 mg [Concomitant]
  4. dextrose 5% in water solution 25 mL [Concomitant]
  5. granisetron injection 1 mg [Concomitant]
  6. sodium chloride 0.9% flush 10 mL [Concomitant]

REACTIONS (11)
  - Hypoaesthesia oral [None]
  - Pain in jaw [None]
  - Oropharyngeal pain [None]
  - Vision blurred [None]
  - Dyspnoea [None]
  - Rash pruritic [None]
  - Paraesthesia [None]
  - Headache [None]
  - Hypoaesthesia [None]
  - Speech disorder [None]
  - Hypoaesthesia [None]

NARRATIVE: CASE EVENT DATE: 20240315
